FAERS Safety Report 23432140 (Version 1)
Quarter: 2024Q1

REPORT INFORMATION
  Report Type: Spontaneous
  Country: US (occurrence: None)
  Receive Date: 20240122
  Receipt Date: 20240122
  Transmission Date: 20240410
  Serious: Yes (Life-Threatening, Disabling, Other)
  Sender: FDA-Public Use
  Company Number: None

PATIENT
  Age: 50 Year
  Sex: Female
  Weight: 101.25 kg

DRUGS (1)
  1. OZEMPIC [Suspect]
     Active Substance: SEMAGLUTIDE
     Indication: Diabetes mellitus
     Dosage: OTHER FREQUENCY : WEEKLY;?
     Route: 058
     Dates: start: 20210101, end: 20240122

REACTIONS (7)
  - Anhedonia [None]
  - Flat affect [None]
  - Drug ineffective [None]
  - Depression [None]
  - Therapy interrupted [None]
  - Impaired quality of life [None]
  - Suicidal ideation [None]

NARRATIVE: CASE EVENT DATE: 20240122
